FAERS Safety Report 21882882 (Version 1)
Quarter: 2023Q1

REPORT INFORMATION
  Report Type: Spontaneous
  Country: FR (occurrence: FR)
  Receive Date: 20230119
  Receipt Date: 20230119
  Transmission Date: 20230417
  Serious: Yes (Hospitalization, Other)
  Sender: FDA-Public Use
  Company Number: None

PATIENT
  Age: 77 Year
  Sex: Male
  Weight: 78 kg

DRUGS (6)
  1. KARDEGIC [Suspect]
     Active Substance: ASPIRIN DL-LYSINE
     Indication: Ischaemic stroke
     Dosage: 160 MG, QD
     Route: 048
     Dates: start: 20221201, end: 20221206
  2. CLOPIDOGREL BISULFATE [Suspect]
     Active Substance: CLOPIDOGREL BISULFATE
     Indication: Ischaemic stroke
     Dosage: 75 MG, QD
     Route: 048
     Dates: start: 20221201, end: 20221206
  3. LOVENOX [Suspect]
     Active Substance: ENOXAPARIN SODIUM
     Indication: Coagulopathy
     Dosage: 4000 IU, QD
     Route: 058
     Dates: start: 20221201, end: 20221206
  4. IRBESARTAN [Concomitant]
     Active Substance: IRBESARTAN
     Dosage: UNK
  5. URAPIDIL [Concomitant]
     Active Substance: URAPIDIL
     Dosage: UNK
     Route: 065
  6. ATORVASTATIN [Concomitant]
     Active Substance: ATORVASTATIN
     Dosage: UNK

REACTIONS (3)
  - Intestinal haemorrhage [Recovering/Resolving]
  - Gastrointestinal haemorrhage [Recovered/Resolved]
  - Blood loss anaemia [Recovered/Resolved]

NARRATIVE: CASE EVENT DATE: 20221206
